FAERS Safety Report 10089313 (Version 1)
Quarter: 2014Q2

REPORT INFORMATION
  Report Type: Spontaneous
  Country: TH (occurrence: None)
  Receive Date: 20140417
  Receipt Date: 20140417
  Transmission Date: 20141212
  Serious: Yes (Death, Other)
  Sender: FDA-Public Use
  Company Number: TH-ALKEM-000557

PATIENT
  Age: 12 Year
  Sex: Male

DRUGS (5)
  1. MYCOPHENOLATE MOFETIL (MYCOPHENOLATE MOFETIL) [Suspect]
     Indication: RENAL TRANSPLANT
  2. TACROLIMUS (TACROLIMUS) [Suspect]
     Indication: RENAL TRANSPLANT
  3. PREDNISOLONE (PREDNISOLONE) [Suspect]
     Indication: RENAL TRANSPLANT
  4. DILTIAZEM (DILTIAZEM) [Concomitant]
  5. COTRIMOXAZOLE (COTRIMOXAZOLE) [Concomitant]

REACTIONS (24)
  - Histiocytosis haematophagic [None]
  - Pancytopenia [None]
  - Pneumothorax spontaneous [None]
  - Pneumonia cytomegaloviral [None]
  - Urinary tract infection [None]
  - Proteinuria [None]
  - Hypoalbuminaemia [None]
  - Hypercholesterolaemia [None]
  - Hypertension [None]
  - Hydronephrosis [None]
  - Complications of transplanted kidney [None]
  - Tubulointerstitial nephritis [None]
  - Renal tubular atrophy [None]
  - Kidney transplant rejection [None]
  - Oedema [None]
  - Lupus nephritis [None]
  - Renal impairment [None]
  - Haemodialysis [None]
  - Hydroureter [None]
  - Vesicoureteric reflux [None]
  - Serum ferritin increased [None]
  - Blood triglycerides increased [None]
  - Blood fibrinogen decreased [None]
  - Pulmonary haemorrhage [None]
